FAERS Safety Report 11120994 (Version 1)
Quarter: 2015Q2

REPORT INFORMATION
  Report Type: Report from Study
  Country: GB (occurrence: GB)
  Receive Date: 20150519
  Receipt Date: 20150519
  Transmission Date: 20150821
  Serious: Yes (Death)
  Sender: FDA-Public Use
  Company Number: GB-ROCHE-648484

PATIENT
  Age: 68 Year
  Sex: Male
  Weight: 63.6 kg

DRUGS (4)
  1. CISPLATIN. [Suspect]
     Active Substance: CISPLATIN
     Indication: OESOPHAGEAL ADENOCARCINOMA
     Dosage: MOST RECENT DOSE: 13 APRIL 2009
     Route: 042
     Dates: start: 20090302
  2. EPIRUBICIN [Suspect]
     Active Substance: EPIRUBICIN
     Indication: OESOPHAGEAL ADENOCARCINOMA
     Dosage: MOST RECENT DOSE: 13 APRIL 2009
     Route: 042
     Dates: start: 20090302
  3. BEVACIZUMAB [Suspect]
     Active Substance: BEVACIZUMAB
     Indication: OESOPHAGEAL ADENOCARCINOMA
     Dosage: MOST RECENT DOSE: 13 APRIL 2009
     Route: 042
  4. CAPECITABINE. [Suspect]
     Active Substance: CAPECITABINE
     Indication: OESOPHAGEAL ADENOCARCINOMA
     Dosage: OPERABLE ADENOCARCINOMA OF THE STOMACH AND GASTRO-OESOPHAGEAL JUNCTION
     Route: 048

REACTIONS (1)
  - Microangiopathic haemolytic anaemia [Fatal]

NARRATIVE: CASE EVENT DATE: 20090714
